FAERS Safety Report 9015043 (Version 1)
Quarter: 2013Q2

REPORT INFORMATION
  Report Type: Spontaneous
  Country: US (occurrence: None)
  Receive Date: 20130109
  Receipt Date: 20130109
  Transmission Date: 20140414
  Serious: Yes (Other)
  Sender: FDA-Public Use
  Company Number: None

PATIENT
  Age: 60 Year
  Sex: Male
  Weight: 68.04 kg

DRUGS (4)
  1. PROTOPIC [Suspect]
     Dates: start: 20121017
  2. BLOOD PRESSURE PREVENTIVE [Concomitant]
  3. LOVAZA [Concomitant]
  4. AZOPT EYE DROPS [Concomitant]

REACTIONS (3)
  - Hypersensitivity [None]
  - Laceration [None]
  - Haemorrhage [None]
